FAERS Safety Report 4624197-3 (Version None)
Quarter: 2005Q1

REPORT INFORMATION
  Report Type: 
  Country: None (occurrence: None)
  Receive Date: 20050331
  Receipt Date: 20050322
  Transmission Date: 20050727
  Serious: Yes (Life-Threatening, Hospitalization, Other)
  Sender: FDA-Public Use
  Company Number: FR-BRISTOL-MYERS SQUIBB COMPANY-12911913

PATIENT
  Age: 69 Year
  Sex: Female

DRUGS (5)
  1. APROVEL TABS 150 MG [Suspect]
     Indication: CARDIAC FAILURE
     Route: 048
     Dates: end: 20010711
  2. ALDACTONE [Suspect]
     Indication: CARDIAC FAILURE
     Dates: start: 19990604, end: 20010710
  3. DIGOXINE NATIVELLE [Suspect]
     Dates: end: 20010710
  4. LASILIX [Concomitant]
     Dates: end: 20010710
  5. METFORMIN HCL [Concomitant]
     Dates: end: 20010710

REACTIONS (6)
  - ATRIOVENTRICULAR BLOCK COMPLETE [None]
  - BRADYCARDIA [None]
  - HYPERKALAEMIA [None]
  - HYPONATRAEMIA [None]
  - OVERDOSE [None]
  - RENAL FAILURE ACUTE [None]
